FAERS Safety Report 18042179 (Version 1)
Quarter: 2020Q3

REPORT INFORMATION
  Report Type: Other
  Country: DE (occurrence: DE)
  Receive Date: 20200720
  Receipt Date: 20200720
  Transmission Date: 20201103
  Serious: Yes (Hospitalization)
  Sender: FDA-Public Use
  Company Number: DE-ORCHID HEALTHCARE-2087503

PATIENT
  Age: 30 Year
  Sex: Male

DRUGS (2)
  1. DIVALPROEX SODIUM. [Suspect]
     Active Substance: DIVALPROEX SODIUM
     Indication: EPILEPSY
     Route: 065
  2. RIVAROXABAN [Interacting]
     Active Substance: RIVAROXABAN
     Route: 065

REACTIONS (3)
  - Hyperhomocysteinaemia [Recovered/Resolved]
  - Deep vein thrombosis [Recovered/Resolved]
  - Drug interaction [Unknown]
